FAERS Safety Report 4864077-1 (Version None)
Quarter: 2005Q4

REPORT INFORMATION
  Report Type: 
  Country: None (occurrence: None)
  Receive Date: 20051222
  Receipt Date: 20050414
  Transmission Date: 20060501
  Serious: Yes (Other)
  Sender: FDA-Public Use
  Company Number: GBWYE586714APR05

PATIENT
  Sex: Female

DRUGS (5)
  1. ENBREL [Suspect]
     Indication: RHEUMATOID ARTHRITIS
     Dosage: UNKNOWN
     Route: 058
     Dates: start: 20040802
  2. IBUPROFEN [Concomitant]
  3. THYROXIN [Concomitant]
  4. CALCIUM GLUCONATE [Concomitant]
  5. VITAMINS NOS [Concomitant]

REACTIONS (4)
  - EYE HAEMORRHAGE [None]
  - HYPERTENSION [None]
  - RETINAL VEIN THROMBOSIS [None]
  - VISUAL FIELD DEFECT [None]
